FAERS Safety Report 21169912 (Version 2)
Quarter: 2022Q4

REPORT INFORMATION
  Report Type: Other
  Country: DE (occurrence: DE)
  Receive Date: 20220804
  Receipt Date: 20221024
  Transmission Date: 20230112
  Serious: Yes (Other)
  Sender: FDA-Public Use
  Company Number: DE-ROCHE-3115852

PATIENT
  Age: 18 Year
  Sex: Male

DRUGS (1)
  1. RITUXIMAB [Suspect]
     Active Substance: RITUXIMAB
     Indication: T-cell type acute leukaemia
     Route: 065

REACTIONS (2)
  - Off label use [Unknown]
  - Hepatitis E [Unknown]
